FAERS Safety Report 26113715 (Version 2)
Quarter: 2025Q4

REPORT INFORMATION
  Report Type: Spontaneous
  Country: US (occurrence: US)
  Receive Date: 20251202
  Receipt Date: 20251225
  Transmission Date: 20260118
  Serious: No
  Sender: DR REDDYS
  Company Number: US-DRL-USA-USA/2025/11/017687

PATIENT
  Age: 75 Year
  Sex: Female
  Weight: 52.16 kg

DRUGS (1)
  1. NICOTINE TRANSDERMAL SYSTEM STEP 2 [Suspect]
     Active Substance: NICOTINE
     Indication: Ex-tobacco user
     Route: 062

REACTIONS (1)
  - Drug ineffective [Unknown]
